FAERS Safety Report 23204095 (Version 1)
Quarter: 2023Q4

REPORT INFORMATION
  Report Type: Spontaneous
  Country: IT (occurrence: IT)
  Receive Date: 20231120
  Receipt Date: 20231120
  Transmission Date: 20240110
  Serious: Yes (Hospitalization)
  Sender: FDA-Public Use
  Company Number: IT-ROCHE-3246339

PATIENT
  Age: 45 Year
  Sex: Female
  Weight: 65 kg

DRUGS (32)
  1. CAPECITABINE [Suspect]
     Active Substance: CAPECITABINE
     Indication: HER2 positive breast cancer
     Dosage: 150 MG, QD,FREQUENCY 4 TIMES
     Route: 048
     Dates: start: 20221121, end: 20221212
  2. CAPECITABINE [Suspect]
     Active Substance: CAPECITABINE
     Dosage: 500,MG QD
     Route: 048
     Dates: start: 20221121, end: 20221212
  3. DOCETAXEL [Suspect]
     Active Substance: DOCETAXEL\DOCETAXEL ANHYDROUS
     Dosage: 60 MG/M2, TIW,FREQUNCY: EVERY THREE WEEK,INTRAVENOUS (NOT OTHERWISE SPECIFIED), MOST RECENT DOSE PRI
     Route: 042
     Dates: start: 20170418, end: 20170418
  4. DOCETAXEL [Suspect]
     Active Substance: DOCETAXEL\DOCETAXEL ANHYDROUS
     Indication: HER2 positive breast cancer
     Dosage: 75 MG/M2, TIW
     Route: 042
     Dates: start: 20170509, end: 20170928
  5. EXEMESTANE [Suspect]
     Active Substance: EXEMESTANE
     Indication: HER2 positive breast cancer
     Dosage: 25 MG, QD (MOST RECENT DOSE PRIOR TO AE 03 AUG 2020)
     Route: 048
     Dates: start: 20171019, end: 20200803
  6. LEUPROLIDE ACETATE [Suspect]
     Active Substance: LEUPROLIDE ACETATE
     Indication: Deep vein thrombosis
     Dosage: 3.75 MG
     Route: 058
     Dates: start: 20171019
  7. PERTUZUMAB [Suspect]
     Active Substance: PERTUZUMAB
     Dosage: 420.000MG TIW
     Route: 042
     Dates: start: 20170509, end: 20200803
  8. PERTUZUMAB [Suspect]
     Active Substance: PERTUZUMAB
     Indication: HER2 positive breast cancer
     Dosage: 840 MG, TIW,INTRAVENOUS (NOT OTHERWISE SPECIFIED), FREQYENCY:EVERY THREE WEEK,MOST RECENT DOSE PRIOR
     Route: 042
     Dates: start: 20170418, end: 20170418
  9. TRASTUZUMAB [Suspect]
     Active Substance: TRASTUZUMAB
     Dosage: 198.000MG TIW
     Route: 042
     Dates: start: 20220316, end: 20221121
  10. TRASTUZUMAB [Suspect]
     Active Substance: TRASTUZUMAB
     Dosage: 350.000MG TIW
     Route: 042
     Dates: start: 20211020, end: 20220316
  11. TRASTUZUMAB [Suspect]
     Active Substance: TRASTUZUMAB
     Dosage: 490.000MG/KG TIW
     Route: 042
     Dates: start: 20221121, end: 20230109
  12. TRASTUZUMAB [Suspect]
     Active Substance: TRASTUZUMAB
     Indication: HER2 positive breast cancer
     Dosage: 6.000MG/KG TIW
     Route: 042
     Dates: start: 20170509, end: 20200803
  13. TRASTUZUMAB [Suspect]
     Active Substance: TRASTUZUMAB
     Dosage: 600.000MG TIW
     Route: 058
     Dates: start: 20230109
  14. TRASTUZUMAB [Suspect]
     Active Substance: TRASTUZUMAB
     Dosage: FREQUENCY : EVERY THREE WEEK.MOST RECENT DOSE PRIOR TO THE EVENT: 21/NOV/2022I.V. DRIP
     Route: 042
     Dates: start: 20170418, end: 20170418
  15. ADO-TRASTUZUMAB EMTANSINE [Suspect]
     Active Substance: ADO-TRASTUZUMAB EMTANSINE
     Indication: HER2 positive breast cancer
     Dosage: INTRAVENOUS (NOT OTHERWISE SPECIFIED) ,FRQUENCY:EVERY THREE WEEK,MOST RECENT DOSE PRIOR TO THE EVENT
     Route: 042
     Dates: start: 20200803, end: 20210927
  16. TUCATINIB [Suspect]
     Active Substance: TUCATINIB
     Indication: HER2 positive breast cancer
     Dosage: 150 MG, QD,FREQUNCY:4 TIMES
     Route: 048
     Dates: start: 20221121, end: 20221212
  17. ALDACTONE [Concomitant]
     Active Substance: SPIRONOLACTONE
     Indication: Product used for unknown indication
     Dosage: 25 MG,ONGOING = CHECKED
     Route: 048
     Dates: start: 20221012, end: 20221222
  18. ARIXTRA [Concomitant]
     Active Substance: FONDAPARINUX SODIUM
     Indication: Deep vein thrombosis
     Dosage: 7.5 MG,ONGOING = CHECKED
     Route: 048
     Dates: start: 20221111, end: 20221212
  19. CHLORPHENIRAMINE MALEATE [Concomitant]
     Active Substance: CHLORPHENIRAMINE MALEATE
     Indication: Product used for unknown indication
     Dosage: UNK (ONGOING CHECKED)
     Route: 065
     Dates: start: 20170718
  20. ENANTONE LP [Concomitant]
     Active Substance: LEUPROLIDE ACETATE
     Indication: Product used for unknown indication
     Dosage: 3.75 MG,ONGOING = CHECKED
     Route: 058
     Dates: start: 20171018, end: 20221212
  21. FOLIC ACID [Concomitant]
     Active Substance: FOLIC ACID
     Indication: Product used for unknown indication
     Dosage: UNK,ONGOING = CHECKED
     Route: 048
     Dates: start: 20220622
  22. FUROSEMIDE [Concomitant]
     Active Substance: FUROSEMIDE
     Dosage: 12.5 MG, QD
     Route: 048
     Dates: start: 20170525, end: 20170716
  23. FUROSEMIDE [Concomitant]
     Active Substance: FUROSEMIDE
     Dosage: 25 MG, QD
     Route: 048
     Dates: start: 20170414, end: 20170418
  24. FUROSEMIDE [Concomitant]
     Active Substance: FUROSEMIDE
     Indication: Product used for unknown indication
     Dosage: UNK,ONGOING = CHECKED
     Route: 065
     Dates: start: 20221012
  25. LANSOPRAZOLE [Concomitant]
     Active Substance: LANSOPRAZOLE
     Indication: Product used for unknown indication
     Dosage: 15 MG, QD,ONGOING = CHECKED
     Route: 048
     Dates: start: 20201005
  26. LEVETIRACETAM [Concomitant]
     Active Substance: LEVETIRACETAM
     Indication: Product used for unknown indication
     Dosage: 500 MG,ONGOING = CHECKED
     Route: 048
     Dates: start: 20210614
  27. MOVICOL [Concomitant]
     Active Substance: POLYETHYLENE GLYCOL 3350\POTASSIUM CHLORIDE\SODIUM BICARBONATE\SODIUM CHLORIDE
     Indication: Product used for unknown indication
     Dosage: UNK,ONGOING = CHECKEDUNK
     Route: 065
     Dates: start: 20220413
  28. CYANOCOBALAMIN\PYRIDOXINE\THIAMINE [Concomitant]
     Active Substance: CYANOCOBALAMIN\PYRIDOXINE\THIAMINE
     Indication: Product used for unknown indication
     Dosage: UNK,ONGOING = CHECKED
     Route: 048
     Dates: start: 20220622
  29. OXYCODONE [Concomitant]
     Active Substance: OXYCODONE
     Indication: Product used for unknown indication
     Dosage: 2.5 MG,ONGOING = CHECKED
     Route: 048
     Dates: start: 20221109
  30. Tiobec [Concomitant]
     Indication: Product used for unknown indication
     Dosage: UNK UNK, QD,ONGOING = CHECKED
     Route: 048
     Dates: start: 20220622, end: 20221212
  31. DEXAMETHASONE SODIUM PHOSPHATE [Concomitant]
     Active Substance: DEXAMETHASONE SODIUM PHOSPHATE
     Indication: Product used for unknown indication
     Dosage: 2 MG,ONGOING = CHECKED
     Route: 048
     Dates: start: 20220921, end: 20221222
  32. DEXAMETHASONE SODIUM PHOSPHATE [Concomitant]
     Active Substance: DEXAMETHASONE SODIUM PHOSPHATE
     Dosage: 4 MG,ONGOING = CHECKED
     Route: 048
     Dates: start: 20220727, end: 20221222

REACTIONS (2)
  - Nervous system disorder [Not Recovered/Not Resolved]
  - Neurological decompensation [Not Recovered/Not Resolved]

NARRATIVE: CASE EVENT DATE: 20221212
